FAERS Safety Report 6454031-0 (Version None)
Quarter: 2009Q4

REPORT INFORMATION
  Report Type: 
  Country: None (occurrence: None)
  Receive Date: 20091124
  Receipt Date: 20091119
  Transmission Date: 20100525
  Serious: Yes (Death, Hospitalization)
  Sender: FDA-Public Use
  Company Number: A0818149A

PATIENT
  Age: 64 Year
  Sex: Male

DRUGS (6)
  1. REQUIP [Suspect]
     Dosage: .05TAB AT NIGHT
     Route: 048
     Dates: start: 20081101, end: 20091114
  2. TRAZODONE HCL [Concomitant]
  3. ATIVAN [Concomitant]
  4. IRON PILLS [Concomitant]
  5. TOPROL-XL [Concomitant]
  6. NEXIUM [Concomitant]

REACTIONS (4)
  - CARDIAC DISORDER [None]
  - FLUID RETENTION [None]
  - HEPATIC FAILURE [None]
  - RENAL FAILURE [None]
